FAERS Safety Report 6395433-0 (Version None)
Quarter: 2009Q4

REPORT INFORMATION
  Report Type: 
  Country: None (occurrence: None)
  Receive Date: 20091009
  Receipt Date: 20091002
  Transmission Date: 20100525
  Serious: Yes (Hospitalization)
  Sender: FDA-Public Use
  Company Number: DE-GENENTECH-288511

PATIENT
  Sex: Female

DRUGS (4)
  1. BEVACIZUMAB [Suspect]
     Indication: BREAST CANCER
     Dosage: 15 MG/KG, Q21D
     Route: 050
     Dates: start: 20090507
  2. DOCETAXEL [Suspect]
     Indication: BREAST CANCER
     Dosage: 100 MG, Q21D
     Route: 050
     Dates: start: 20090730
  3. CYCLOPHOSPHAMIDE [Suspect]
     Indication: BREAST CANCER
     Dosage: 600 MG, Q21D
     Route: 042
     Dates: start: 20090507
  4. EPIRUBICIN [Suspect]
     Indication: BREAST CANCER
     Dosage: 90 MG, Q21D
     Route: 042
     Dates: start: 20090507

REACTIONS (1)
  - TONSILLITIS [None]
